FAERS Safety Report 25859190 (Version 3)
Quarter: 2025Q4

REPORT INFORMATION
  Report Type: Spontaneous
  Country: JP (occurrence: JP)
  Receive Date: 20250929
  Receipt Date: 20251120
  Transmission Date: 20260118
  Serious: Yes (Hospitalization)
  Sender: PFIZER
  Company Number: JP-PFIZER INC-PV202500115545

PATIENT
  Age: 9 Decade
  Sex: Female
  Weight: 39.6 kg

DRUGS (7)
  1. TAFAMIDIS [Suspect]
     Active Substance: TAFAMIDIS
     Indication: Cardiac amyloidosis
     Dosage: 61 MG, DAILY
     Route: 048
     Dates: start: 20250731, end: 20250803
  2. FUROSEMIDE [Concomitant]
     Active Substance: FUROSEMIDE
     Indication: Cardiac failure congestive
     Dosage: 20 MG, AFTER BREAKFAST
  3. TOLVAPTAN [Concomitant]
     Active Substance: TOLVAPTAN
     Indication: Cardiac failure congestive
     Dosage: 3.75 MG, AFTER BREAKFAST
  4. SPIRONOLACTONE [Concomitant]
     Active Substance: SPIRONOLACTONE
     Indication: Cardiac failure congestive
     Dosage: 25 MG
  5. BROTIZOLAM [Concomitant]
     Active Substance: BROTIZOLAM
     Indication: Insomnia
     Dosage: 0.125 MG, BEFORE SLEEP
  6. REBAMIPIDE [Concomitant]
     Active Substance: REBAMIPIDE
     Indication: Chronic gastritis
     Dosage: 100 MG, AFTER BREAKFAST AND AFTER DINNER
  7. ACETAMINOPHEN [Concomitant]
     Active Substance: ACETAMINOPHEN
     Indication: Back pain
     Dosage: 500 MG, AT THE TIME OF PAIN

REACTIONS (2)
  - Cerebral infarction [Recovered/Resolved with Sequelae]
  - Paresis [Not Recovered/Not Resolved]

NARRATIVE: CASE EVENT DATE: 20250101
